FAERS Safety Report 6490772-7 (Version None)
Quarter: 2009Q4

REPORT INFORMATION
  Report Type: 
  Country: None (occurrence: None)
  Receive Date: 20091211
  Receipt Date: 20091208
  Transmission Date: 20100525
  Serious: Yes (Death)
  Sender: FDA-Public Use
  Company Number: US-JNJFOC-20091100487

PATIENT
  Sex: Male
  Weight: 81.19 kg

DRUGS (2)
  1. DURAGESIC-100 [Suspect]
     Indication: PANCREATIC CARCINOMA
     Route: 062
     Dates: start: 20081119
  2. MORPHINE SULFATE [Concomitant]
     Indication: ABDOMINAL PAIN
     Route: 065

REACTIONS (6)
  - CARDIAC FAILURE CONGESTIVE [None]
  - CORONARY ARTERY DISEASE [None]
  - DIABETES MELLITUS [None]
  - HEPATITIS [None]
  - HYPERTENSION [None]
  - PANCREATIC CARCINOMA [None]
